FAERS Safety Report 21687791 (Version 1)
Quarter: 2022Q4

REPORT INFORMATION
  Report Type: Spontaneous
  Country: GB (occurrence: GB)
  Receive Date: 20221206
  Receipt Date: 20221206
  Transmission Date: 20230113
  Serious: Yes (Death)
  Sender: FDA-Public Use
  Company Number: GB-MLMSERVICE-20221130-3952816-1

PATIENT
  Age: 30 Year
  Sex: Male

DRUGS (8)
  1. MIRTAZAPINE [Suspect]
     Active Substance: MIRTAZAPINE
     Dosage: UNK
     Route: 048
  2. PREGABALIN [Suspect]
     Active Substance: PREGABALIN
     Dosage: 12 MG/L,
  3. DIAZEPAM [Suspect]
     Active Substance: DIAZEPAM
     Dosage: UNK
  4. MORPHINE [Suspect]
     Active Substance: MORPHINE
     Dosage: UNK
  5. CODEINE [Suspect]
     Active Substance: CODEINE
     Dosage: UNK
  6. NOSCAPINE [Suspect]
     Active Substance: NOSCAPINE
     Dosage: UNK
  7. PAPAVERINE [Suspect]
     Active Substance: PAPAVERINE
     Dosage: UNK
  8. CANNABIS SATIVA SUBSP. INDICA TOP [Suspect]
     Active Substance: CANNABIS SATIVA SUBSP. INDICA TOP
     Dosage: UNK

REACTIONS (1)
  - Toxicity to various agents [Fatal]
